FAERS Safety Report 4707863-0 (Version None)
Quarter: 2005Q3

REPORT INFORMATION
  Report Type: 
  Country: None (occurrence: None)
  Receive Date: 20050705
  Receipt Date: 20050705
  Transmission Date: 20060218
  Serious: Yes (Other)
  Sender: FDA-Public Use
  Company Number: None

PATIENT
  Age: 66 Year
  Sex: Male

DRUGS (1)
  1. TAXOL [Suspect]

REACTIONS (3)
  - DEVICE FAILURE [None]
  - EMBOLISM VENOUS [None]
  - PROCEDURAL COMPLICATION [None]
